FAERS Safety Report 8071903-4 (Version None)
Quarter: 2012Q1

REPORT INFORMATION
  Report Type: 
  Country: None (occurrence: None)
  Receive Date: 20120119
  Receipt Date: 20120104
  Transmission Date: 20120608
  Serious: Yes (Other)
  Sender: FDA-Public Use
  Company Number: AUR-APL-2011-06051

PATIENT
  Age: 35 Year
  Sex: Female

DRUGS (2)
  1. FOLIC ACID [Concomitant]
  2. FINASTERIDE [Suspect]
     Indication: PRODUCT USED FOR UNKNOWN INDICATION

REACTIONS (3)
  - WRONG TECHNIQUE IN DRUG USAGE PROCESS [None]
  - ACCIDENTAL EXPOSURE [None]
  - MATERNAL EXPOSURE DURING PREGNANCY [None]
